FAERS Safety Report 19928302 (Version 1)
Quarter: 2021Q4

REPORT INFORMATION
  Report Type: Spontaneous
  Country: US (occurrence: US)
  Receive Date: 20211006
  Receipt Date: 20211006
  Transmission Date: 20220303
  Serious: No
  Sender: FDA-Public Use
  Company Number: None

PATIENT
  Age: 73 Year
  Sex: Female
  Weight: 56.7 kg

DRUGS (4)
  1. CREST 3D WHITE ARCTIC FRESH [Suspect]
     Active Substance: SODIUM FLUORIDE
     Indication: Tooth discolouration
  2. ASPIRIN [Concomitant]
     Active Substance: ASPIRIN
  3. VIACTIV [Concomitant]
  4. VITAMINS [Concomitant]
     Active Substance: VITAMINS

REACTIONS (3)
  - Gingival pain [None]
  - Gingival erythema [None]
  - Product complaint [None]

NARRATIVE: CASE EVENT DATE: 20211001
